FAERS Safety Report 5737650-6 (Version None)
Quarter: 2008Q2

REPORT INFORMATION
  Report Type: 
  Country: None (occurrence: None)
  Receive Date: 20080512
  Receipt Date: 20080512
  Transmission Date: 20081010
  Serious: Yes (Other)
  Sender: FDA-Public Use
  Company Number: None

PATIENT
  Sex: Female
  Weight: 65.7716 kg

DRUGS (1)
  1. CREST PRO-HEALTH TOOTHPASTE  7.8 OZ  PROCTOR + GAMBLE [Suspect]
     Indication: DENTAL DISORDER PROPHYLAXIS
     Dates: start: 20080310, end: 20080509

REACTIONS (13)
  - CANDIDIASIS [None]
  - DYSPHAGIA [None]
  - GINGIVAL BLEEDING [None]
  - GINGIVAL PAIN [None]
  - LIP SWELLING [None]
  - MOUTH INJURY [None]
  - ORAL MUCOSAL EXFOLIATION [None]
  - PAIN [None]
  - PHARMACEUTICAL PRODUCT COMPLAINT [None]
  - PHARYNGOLARYNGEAL PAIN [None]
  - STOMATITIS [None]
  - TOOTH DISCOLOURATION [None]
  - TOOTHACHE [None]
